FAERS Safety Report 25234043 (Version 1)
Quarter: 2025Q2

REPORT INFORMATION
  Report Type: Spontaneous
  Country: GB (occurrence: GB)
  Receive Date: 20250424
  Receipt Date: 20250424
  Transmission Date: 20250717
  Serious: Yes (Hospitalization, Other)
  Sender: CIPLA
  Company Number: GB-MHRA-TPP22257520C8775485YC1744215767973

PATIENT

DRUGS (1)
  1. ALBUTEROL [Suspect]
     Active Substance: ALBUTEROL
     Indication: Ill-defined disorder
     Route: 065
     Dates: start: 20250227

REACTIONS (2)
  - Syncope [Recovering/Resolving]
  - Foaming at mouth [Unknown]

NARRATIVE: CASE EVENT DATE: 20250302
